FAERS Safety Report 18027086 (Version 1)
Quarter: 2020Q3

REPORT INFORMATION
  Report Type: Spontaneous
  Country: US (occurrence: US)
  Receive Date: 20200715
  Receipt Date: 20200715
  Transmission Date: 20201103
  Serious: Yes (Other)
  Sender: FDA-Public Use
  Company Number: US-SAGENT PHARMACEUTICALS-2020SAG001467

PATIENT

DRUGS (1)
  1. THIAMINE HYDROCHLORIDE. [Suspect]
     Active Substance: THIAMINE HYDROCHLORIDE
     Indication: VITAMIN SUPPLEMENTATION

REACTIONS (6)
  - Hypercalcaemia [Unknown]
  - Foetal death [Unknown]
  - Parathyroid tumour benign [Recovered/Resolved]
  - Venous thrombosis limb [Unknown]
  - Hyperparathyroidism [Recovered/Resolved]
  - Exposure during pregnancy [Unknown]
